FAERS Safety Report 16973117 (Version 2)
Quarter: 2020Q1

REPORT INFORMATION
  Report Type: Spontaneous
  Country: US (occurrence: US)
  Receive Date: 20191030
  Receipt Date: 20200313
  Transmission Date: 20200409
  Serious: No
  Sender: FDA-Public Use
  Company Number: US-TEVA-2019-US-1129091

PATIENT
  Sex: Male

DRUGS (1)
  1. TESTOSTERONE CYP INJ. ACTAVIS [Suspect]
     Active Substance: TESTOSTERONE CYPIONATE
     Indication: BLOOD TESTOSTERONE DECREASED
     Dosage: 150-200 MG IM A MONTH FOR ABOUT 2 YEARS
     Route: 030

REACTIONS (1)
  - Blood testosterone abnormal [Unknown]
